FAERS Safety Report 4417634-0 (Version None)
Quarter: 2004Q3

REPORT INFORMATION
  Report Type: 
  Country: None (occurrence: None)
  Receive Date: 20040803
  Receipt Date: 20040721
  Transmission Date: 20050211
  Serious: Yes (Other)
  Sender: FDA-Public Use
  Company Number: 2004049425

PATIENT
  Age: 43 Year
  Sex: Female

DRUGS (1)
  1. NICOTINE [Suspect]
     Indication: SMOKING CESSATION THERAPY

REACTIONS (3)
  - BRONCHOPNEUMONIA [None]
  - LUNG NEOPLASM MALIGNANT [None]
  - THERAPY NON-RESPONDER [None]
